FAERS Safety Report 4625221-4 (Version None)
Quarter: 2005Q2

REPORT INFORMATION
  Report Type: 
  Country: None (occurrence: None)
  Receive Date: 20050401
  Receipt Date: 20050309
  Transmission Date: 20051028
  Serious: Yes (Other)
  Sender: FDA-Public Use
  Company Number: JP-ROCHE-399000

PATIENT
  Age: 8 Year
  Sex: Female

DRUGS (2)
  1. TAMIFLU [Suspect]
     Route: 048
     Dates: start: 20050226, end: 20050226
  2. TAMIFLU [Suspect]
     Route: 048
     Dates: start: 20050227, end: 20050227

REACTIONS (2)
  - APHASIA [None]
  - DEPRESSED LEVEL OF CONSCIOUSNESS [None]
